FAERS Safety Report 9158612 (Version 6)
Quarter: 2013Q4

REPORT INFORMATION
  Report Type: Spontaneous
  Country: JP (occurrence: JP)
  Receive Date: 20130312
  Receipt Date: 20131004
  Transmission Date: 20140711
  Serious: Yes (Hospitalization, Other)
  Sender: FDA-Public Use
  Company Number: JP-PFIZER INC-2013079442

PATIENT
  Age: 49 Year
  Sex: Male

DRUGS (2)
  1. XALATAN [Suspect]
     Indication: NORMAL TENSION GLAUCOMA
     Dosage: 1 GTT, 1X/DAY
     Route: 047
     Dates: start: 20130119, end: 201301
  2. TRAVATAN Z [Concomitant]
     Indication: NORMAL TENSION GLAUCOMA
     Dosage: 1 GTT, 1X/DAY
     Route: 047
     Dates: start: 20130423, end: 20130831

REACTIONS (2)
  - Asthma [Recovered/Resolved]
  - Limb injury [Unknown]
